FAERS Safety Report 23065496 (Version 1)
Quarter: 2023Q4

REPORT INFORMATION
  Report Type: Spontaneous
  Country: US (occurrence: US)
  Receive Date: 20231013
  Receipt Date: 20231013
  Transmission Date: 20240110
  Serious: No
  Sender: FDA-Public Use
  Company Number: US-009507513-2310USA001517

PATIENT
  Age: 60 Year
  Sex: Male

DRUGS (3)
  1. CUBICIN [Suspect]
     Active Substance: DAPTOMYCIN
     Indication: Pneumonia
     Dosage: UNKNOWN
  2. MEROPENEM [Concomitant]
     Active Substance: MEROPENEM
     Indication: Pneumonia
     Dosage: UNK
  3. AMIKACIN [Concomitant]
     Active Substance: AMIKACIN
     Indication: Pneumonia
     Dosage: UNK

REACTIONS (1)
  - Product use in unapproved indication [Unknown]
